FAERS Safety Report 16054050 (Version 2)
Quarter: 2019Q2

REPORT INFORMATION
  Report Type: Spontaneous
  Country: US (occurrence: US)
  Receive Date: 20190308
  Receipt Date: 20190425
  Transmission Date: 20190711
  Serious: Yes (Hospitalization, Other)
  Sender: FDA-Public Use
  Company Number: US-009507513-1902USA012048

PATIENT
  Age: 2 Year
  Sex: Female
  Weight: 13 kg

DRUGS (5)
  1. TEMODAR [Suspect]
     Active Substance: TEMOZOLOMIDE
     Dosage: 55 MILLIGRAM, Q24H
     Route: 048
     Dates: start: 20190218, end: 20190222
  2. DINUTUXIMAB [Concomitant]
     Active Substance: DINUTUXIMAB
  3. BACTRIM [Concomitant]
     Active Substance: SULFAMETHOXAZOLE\TRIMETHOPRIM
     Indication: ANTIFUNGAL PROPHYLAXIS
     Dosage: 32 MILLIGRAM, BID ON SATURDAY AND SUNDAY
     Route: 048
     Dates: start: 20180901
  4. IRINOTECAN HYDROCHLORIDE. [Concomitant]
     Active Substance: IRINOTECAN HYDROCHLORIDE
  5. TEMODAR [Suspect]
     Active Substance: TEMOZOLOMIDE
     Indication: NEUROBLASTOMA
     Dosage: 55 MILLIGRAM, Q24H
     Route: 048
     Dates: start: 20190128, end: 20190201

REACTIONS (5)
  - Venoocclusive disease [Recovered/Resolved]
  - Retrograde portal vein flow [Unknown]
  - Product administered to patient of inappropriate age [Unknown]
  - Product use in unapproved indication [Unknown]
  - Acute hepatic failure [Not Recovered/Not Resolved]

NARRATIVE: CASE EVENT DATE: 2019
